FAERS Safety Report 5700333-2 (Version None)
Quarter: 2008Q2

REPORT INFORMATION
  Report Type: 
  Country: None (occurrence: None)
  Receive Date: 20080410
  Receipt Date: 20080328
  Transmission Date: 20081010
  Serious: Yes (Other)
  Sender: FDA-Public Use
  Company Number: US-PFIZER INC-2007052997

PATIENT
  Sex: Female
  Weight: 89.8 kg

DRUGS (10)
  1. CHANTIX [Suspect]
     Indication: EX-SMOKER
     Dates: start: 20070101, end: 20070101
  2. SYNTHROID [Concomitant]
  3. VITAMIN B [Concomitant]
  4. LIPITOR [Concomitant]
  5. KLONOPIN [Concomitant]
  6. TOPROL-XL [Concomitant]
  7. KLOR-CON [Concomitant]
  8. ESTRADIOL [Concomitant]
  9. PREVACID [Concomitant]
  10. LORTAB [Concomitant]

REACTIONS (3)
  - DYSTONIA [None]
  - HYSTERECTOMY [None]
  - VOMITING [None]
